FAERS Safety Report 9444048 (Version 1)
Quarter: 2013Q3

REPORT INFORMATION
  Report Type: Spontaneous
  Country: US (occurrence: None)
  Receive Date: 20130806
  Receipt Date: 20130806
  Transmission Date: 20140515
  Serious: Yes (Death)
  Sender: FDA-Public Use
  Company Number: None

PATIENT
  Age: 21 Year
  Sex: Male
  Weight: 56 kg

DRUGS (1)
  1. EZOGABINE [Suspect]
     Indication: CONVULSION
     Route: 048
     Dates: start: 20130724, end: 20130803

REACTIONS (4)
  - Syncope [None]
  - Cardiac arrest [None]
  - Ventricular fibrillation [None]
  - No therapeutic response [None]
